FAERS Safety Report 6258166-7 (Version None)
Quarter: 2009Q3

REPORT INFORMATION
  Report Type: 
  Country: None (occurrence: None)
  Receive Date: 20090707
  Receipt Date: 20090624
  Transmission Date: 20100115
  Serious: Yes (Hospitalization)
  Sender: FDA-Public Use
  Company Number: BE-ASTRAZENECA-2009SE03300

PATIENT
  Age: 26803 Day
  Sex: Female
  Weight: 78 kg

DRUGS (7)
  1. SYMBICORT [Suspect]
     Indication: ASTHMA
     Dosage: 2 INHALATIONS
     Route: 055
     Dates: start: 20080831, end: 20090420
  2. GLUCOPHAGE [Concomitant]
     Indication: DIABETES MELLITUS
     Route: 048
     Dates: start: 20060207
  3. DIOVANE [Concomitant]
     Indication: HYPERTENSION
     Route: 048
     Dates: start: 20021204
  4. ALLOPURINOL [Concomitant]
     Indication: HYPERURICAEMIA
     Route: 048
     Dates: start: 20060207
  5. KREDEX [Concomitant]
     Indication: HYPERTENSION
     Route: 048
     Dates: start: 20010523
  6. LEGALON [Concomitant]
     Indication: GAMMA-GLUTAMYLTRANSFERASE INCREASED
     Route: 065
     Dates: start: 20060107
  7. ASAFLOW [Concomitant]
     Indication: PROPHYLAXIS
     Route: 048
     Dates: start: 20061207

REACTIONS (4)
  - CUSHINGOID [None]
  - DIABETES MELLITUS INADEQUATE CONTROL [None]
  - SYNCOPE [None]
  - WEIGHT INCREASED [None]
